FAERS Safety Report 6665386-6 (Version None)
Quarter: 2010Q1

REPORT INFORMATION
  Report Type: 
  Country: None (occurrence: None)
  Receive Date: 20100323
  Receipt Date: 20100208
  Transmission Date: 20100710
  Serious: No
  Sender: FDA-Public Use
  Company Number: 100209-0000178

PATIENT
  Age: 10 Year
  Sex: Male

DRUGS (5)
  1. SABRIL [Suspect]
     Indication: CONVULSION
     Dosage: 1500 MG; QD; PO; 1000 MG; BID; PO
     Route: 048
     Dates: start: 20091027, end: 20100127
  2. SABRIL [Suspect]
     Indication: CONVULSION
     Dosage: 1500 MG; QD; PO; 1000 MG; BID; PO
     Route: 048
     Dates: start: 20100128
  3. LAMICTAL [Concomitant]
  4. ZONEGRAN [Concomitant]
  5. BENZEL [Concomitant]

REACTIONS (2)
  - GAIT DISTURBANCE [None]
  - SEDATION [None]
